FAERS Safety Report 22658395 (Version 1)
Quarter: 2023Q2

REPORT INFORMATION
  Report Type: Report from Study
  Country: JP (occurrence: JP)
  Receive Date: 20230630
  Receipt Date: 20230630
  Transmission Date: 20230721
  Serious: Yes (Other)
  Sender: FDA-Public Use
  Company Number: JP-MYLANLABS-2023M1068033

PATIENT
  Age: 71 Year
  Sex: Female

DRUGS (4)
  1. CARBOPLATIN [Suspect]
     Active Substance: CARBOPLATIN
     Indication: Adrenocortical carcinoma
     Dosage: UNK
     Route: 065
  2. PACLITAXEL [Suspect]
     Active Substance: PACLITAXEL
     Indication: Adrenocortical carcinoma
     Dosage: UNK
     Route: 065
  3. MITOTANE [Concomitant]
     Active Substance: MITOTANE
     Indication: Adrenocortical carcinoma
     Dosage: 1 GRAM
     Route: 065
  4. MITOTANE [Concomitant]
     Active Substance: MITOTANE
     Dosage: 1.5 GRAM
     Route: 065

REACTIONS (2)
  - Drug ineffective for unapproved indication [Unknown]
  - Off label use [Unknown]
